FAERS Safety Report 9423174 (Version 1)
Quarter: 2013Q3

REPORT INFORMATION
  Report Type: Report from Study
  Country: US (occurrence: US)
  Receive Date: 20130726
  Receipt Date: 20130726
  Transmission Date: 20140515
  Serious: Yes (Hospitalization)
  Sender: FDA-Public Use
  Company Number: PHEH2013US015745

PATIENT
  Age: 61 Year
  Sex: Female

DRUGS (3)
  1. EXELON PATCH [Suspect]
     Indication: DEMENTIA ALZHEIMER^S TYPE
     Dosage: 9.5 MG, DAILY
     Route: 062
     Dates: start: 20130615, end: 20130720
  2. METOPROLOL [Suspect]
     Dosage: UNK
  3. ARMOUR THYROID [Suspect]
     Dosage: UNK

REACTIONS (4)
  - Blood electrolytes decreased [Recovering/Resolving]
  - Blood sodium decreased [Recovering/Resolving]
  - Hypertension [Recovering/Resolving]
  - Malaise [Recovering/Resolving]
